FAERS Safety Report 7229663-2 (Version None)
Quarter: 2011Q1

REPORT INFORMATION
  Report Type: 
  Country: None (occurrence: None)
  Receive Date: 20110117
  Receipt Date: 20110110
  Transmission Date: 20110831
  Serious: Yes (Hospitalization)
  Sender: FDA-Public Use
  Company Number: PHHY2010DE78525

PATIENT
  Sex: Female

DRUGS (1)
  1. TEGRETOL [Suspect]

REACTIONS (3)
  - FALL [None]
  - CERVICAL VERTEBRAL FRACTURE [None]
  - GAIT DISTURBANCE [None]
